FAERS Safety Report 16744580 (Version 1)
Quarter: 2019Q4

REPORT INFORMATION
  Report Type: Spontaneous
  Country: US (occurrence: US)
  Receive Date: 20190826
  Receipt Date: 20190826
  Transmission Date: 20200122
  Serious: Yes (Other)
  Sender: FDA-Public Use
  Company Number: None

PATIENT
  Age: 76 Year
  Sex: Male
  Weight: 118.7 kg

DRUGS (23)
  1. MEROPENEM. [Concomitant]
     Active Substance: MEROPENEM
     Dates: start: 20190820, end: 20190822
  2. FENTANYL. [Concomitant]
     Active Substance: FENTANYL
     Dates: start: 20190818, end: 20190818
  3. THIAMINE. [Concomitant]
     Active Substance: THIAMINE
     Dates: start: 20190819, end: 20190826
  4. POLYETHYLENE GLYCOL [Concomitant]
     Active Substance: POLYETHYLENE GLYCOLS
     Dates: start: 20190820, end: 20190822
  5. INSULIN ASPART [Concomitant]
     Active Substance: INSULIN ASPART
     Dates: start: 20190819, end: 20190826
  6. IODIXANOL. [Concomitant]
     Active Substance: IODIXANOL
     Dates: start: 20190818, end: 20190818
  7. DEXMETOMIDINE [Concomitant]
     Dates: start: 20190819, end: 20190819
  8. ACETAMINOPHEN. [Concomitant]
     Active Substance: ACETAMINOPHEN
     Dates: start: 20190820, end: 20190820
  9. ANDEXXA [Suspect]
     Active Substance: ANDEXANET ALFA
     Indication: PROCOAGULANT THERAPY
     Dosage: ?          OTHER FREQUENCY:ONCE;?
     Route: 040
     Dates: start: 20190818, end: 20190818
  10. ROCURONIUM [Concomitant]
     Active Substance: ROCURONIUM BROMIDE
     Dates: start: 20190818, end: 20190818
  11. FUROSEMIDE. [Concomitant]
     Active Substance: FUROSEMIDE
     Dates: start: 20190820, end: 20190821
  12. MIRTAZIPINE [Concomitant]
     Active Substance: MIRTAZAPINE
     Dates: start: 20190820, end: 20190826
  13. MULTIVITAMIN WITH FOLIC ACID [Concomitant]
     Dates: start: 20190819, end: 20190823
  14. MIDAZOLAM [Concomitant]
     Active Substance: MIDAZOLAM HYDROCHLORIDE
     Dates: start: 20190818, end: 20190819
  15. HYDROMORPHONE [Concomitant]
     Active Substance: HYDROMORPHONE
     Dates: start: 20190819, end: 20190819
  16. MAGNESIUM SULFATE. [Concomitant]
     Active Substance: MAGNESIUM SULFATE
     Dates: start: 20190820, end: 20190823
  17. ETOMIDATE. [Concomitant]
     Active Substance: ETOMIDATE
     Dates: start: 20190818, end: 20190818
  18. ISOSOBRIDE DINITRATE [Concomitant]
     Dates: start: 20190820, end: 20190826
  19. TRANEXAMIC ACID. [Concomitant]
     Active Substance: TRANEXAMIC ACID
     Dates: start: 20190818, end: 20190818
  20. OXYCODONE [Concomitant]
     Active Substance: OXYCODONE
     Dates: start: 20190819, end: 20190826
  21. IOHEXOL [Concomitant]
     Active Substance: IOHEXOL
     Dates: start: 20190818, end: 20190818
  22. ANDEXXA [Suspect]
     Active Substance: ANDEXANET ALFA
     Indication: PROCOAGULANT THERAPY
     Dosage: ?          OTHER FREQUENCY:ONCE;?
     Route: 041
     Dates: start: 20190818, end: 20190819
  23. PROPOFOL. [Concomitant]
     Active Substance: PROPOFOL
     Dates: start: 20190818, end: 20190826

REACTIONS (2)
  - Cerebral infarction [None]
  - Ischaemic stroke [None]

NARRATIVE: CASE EVENT DATE: 20190818
